FAERS Safety Report 4349354-5 (Version None)
Quarter: 2004Q2

REPORT INFORMATION
  Report Type: 
  Country: None (occurrence: None)
  Receive Date: 20040428
  Receipt Date: 20040404
  Transmission Date: 20050107
  Serious: Yes (Hospitalization)
  Sender: FDA-Public Use
  Company Number: PHFR2004IE01700

PATIENT
  Age: 15 Year
  Sex: Male

DRUGS (1)
  1. CLOZARIL [Suspect]
     Dosage: 550 MG, ONCE/SINGLE
     Route: 048

REACTIONS (4)
  - ACCIDENTAL OVERDOSE [None]
  - AGGRESSION [None]
  - SOMNOLENCE [None]
  - VERBAL ABUSE [None]
